FAERS Safety Report 9582819 (Version 1)
Quarter: 2013Q4

REPORT INFORMATION
  Report Type: Spontaneous
  Country: US (occurrence: US)
  Receive Date: 20131002
  Receipt Date: 20131002
  Transmission Date: 20140711
  Serious: No
  Sender: FDA-Public Use
  Company Number: US-AMGEN-USASP2013042995

PATIENT
  Age: 51 Year
  Sex: Female
  Weight: 111.11 kg

DRUGS (9)
  1. ENBREL [Suspect]
     Indication: PRODUCT USED FOR UNKNOWN INDICATION
     Dosage: 50 MG, QWK
     Route: 058
  2. ZINC [Concomitant]
     Dosage: 50 MG, UNK
  3. VITAMIN D                          /00107901/ [Concomitant]
     Dosage: 1000 UNIT, UNK
  4. PROBIOTIC                          /06395501/ [Concomitant]
     Dosage: UNK
  5. ALEVE [Concomitant]
     Dosage: 220 MG, UNK
  6. CALCIUM [Concomitant]
     Dosage: 500 UNK, UNK
  7. VITAMIN C                          /00008001/ [Concomitant]
     Dosage: 500 MG, UNK
  8. B COMPLETE                         /06817001/ [Concomitant]
     Dosage: UNK
  9. BIOTIN [Concomitant]
     Dosage: 5 MG, UNK

REACTIONS (2)
  - Arthralgia [Unknown]
  - Therapeutic response decreased [Unknown]
